FAERS Safety Report 23015731 (Version 1)
Quarter: 2023Q4

REPORT INFORMATION
  Report Type: Spontaneous
  Country: IT (occurrence: IT)
  Receive Date: 20231002
  Receipt Date: 20231002
  Transmission Date: 20240110
  Serious: Yes (Hospitalization)
  Sender: FDA-Public Use
  Company Number: None

PATIENT
  Age: 34 Year
  Sex: Female

DRUGS (2)
  1. MESALAMINE [Suspect]
     Active Substance: MESALAMINE
     Indication: Colitis
     Dosage: 800 MILLIGRAM, Q8H
     Route: 048
     Dates: start: 20230730, end: 20230803
  2. TINIDAZOLE [Concomitant]
     Active Substance: TINIDAZOLE
     Dosage: UNK
     Route: 065

REACTIONS (5)
  - Vomiting [Recovering/Resolving]
  - Tachycardia [Recovering/Resolving]
  - Diarrhoea haemorrhagic [Recovering/Resolving]
  - Headache [Recovering/Resolving]
  - Nausea [Recovering/Resolving]

NARRATIVE: CASE EVENT DATE: 20230803
